FAERS Safety Report 23995019 (Version 3)
Quarter: 2024Q3

REPORT INFORMATION
  Report Type: Spontaneous
  Country: US (occurrence: US)
  Receive Date: 20240620
  Receipt Date: 20240712
  Transmission Date: 20241016
  Serious: Yes (Hospitalization)
  Sender: ROCHE
  Company Number: US-ROCHE-10000001387

PATIENT
  Age: 66 Year
  Sex: Male

DRUGS (1)
  1. RITUXAN [Suspect]
     Active Substance: RITUXIMAB
     Indication: Haemophagocytic lymphohistiocytosis
     Route: 065

REACTIONS (1)
  - Pneumonia [Unknown]
